FAERS Safety Report 8839794 (Version 1)
Quarter: 2012Q4

REPORT INFORMATION
  Report Type: Spontaneous
  Country: GB (occurrence: None)
  Receive Date: 20121011
  Receipt Date: 20121011
  Transmission Date: 20130627
  Serious: Yes (Hospitalization, Disabling)
  Sender: FDA-Public Use
  Company Number: AUR-APL-2012-04303

PATIENT
  Age: 75 Year
  Sex: Female
  Weight: 70 kg

DRUGS (7)
  1. ALENDRONIC ACID (ALENDRONIC ACID) [Suspect]
     Indication: OSTEOPOROSIS
     Dosage: 10 mg (70 mg, 1 in 1 wk), Oral
     Route: 048
     Dates: start: 2002, end: 20120730
  2. AMLODIPINE (AMLODIPINE) [Concomitant]
     Dosage: 10 (70 mg, 1 in 1 wk), oral
     Route: 048
     Dates: start: 2002, end: 20120730
  3. CALCICHEW (CALCIUM CARBONATE) [Concomitant]
  4. DOXAZOSIN (DOXAZOSIN ) [Concomitant]
  5. INSULIN (INSULIN) [Concomitant]
  6. LISINOPRIL (LISINOPRIL) [Concomitant]
  7. SIMVASTATIN (SIMVASTATIN) [Concomitant]

REACTIONS (2)
  - Femur fracture [None]
  - Fall [None]
